FAERS Safety Report 24629922 (Version 1)
Quarter: 2024Q4

REPORT INFORMATION
  Report Type: Spontaneous
  Country: CN (occurrence: CN)
  Receive Date: 20241118
  Receipt Date: 20241118
  Transmission Date: 20250115
  Serious: Yes (Hospitalization)
  Sender: SANOFI AVENTIS
  Company Number: CN-SA-2024SA322683

PATIENT
  Age: 34 Year
  Sex: Female
  Weight: 74 kg

DRUGS (7)
  1. ENOXAPARIN SODIUM [Suspect]
     Active Substance: ENOXAPARIN SODIUM
     Indication: Antiphospholipid syndrome
     Dosage: 4100 IU, QD
     Route: 058
     Dates: start: 20240813, end: 20241019
  2. HYDROXYCHLOROQUINE SULFATE [Concomitant]
     Active Substance: HYDROXYCHLOROQUINE SULFATE
     Indication: Antiphospholipid syndrome
     Dosage: 2 DF, QD
     Route: 048
     Dates: start: 20240609, end: 20241020
  3. HYDROXYCHLOROQUINE SULFATE [Concomitant]
     Active Substance: HYDROXYCHLOROQUINE SULFATE
     Indication: Abortion threatened
  4. ASPIRIN [Concomitant]
     Active Substance: ASPIRIN
     Indication: Antiphospholipid syndrome
     Dosage: 2 DF, QD (50 MG)
     Route: 048
     Dates: start: 20240609, end: 20241020
  5. ASPIRIN [Concomitant]
     Active Substance: ASPIRIN
     Indication: Abortion threatened
  6. NADROPARIN CALCIUM [Concomitant]
     Active Substance: NADROPARIN CALCIUM
     Indication: Abortion threatened
     Dosage: 4100 IU, QD
     Route: 058
     Dates: start: 20240609, end: 20240813
  7. NADROPARIN CALCIUM [Concomitant]
     Active Substance: NADROPARIN CALCIUM
     Indication: Antiphospholipid syndrome

REACTIONS (2)
  - Hepatic function abnormal [Recovering/Resolving]
  - Maternal exposure during pregnancy [Unknown]

NARRATIVE: CASE EVENT DATE: 20240813
